FAERS Safety Report 7204623-6 (Version None)
Quarter: 2010Q4

REPORT INFORMATION
  Report Type: 
  Country: None (occurrence: None)
  Receive Date: 20101230
  Receipt Date: 20101220
  Transmission Date: 20110411
  Serious: Yes (Disabling, Other)
  Sender: FDA-Public Use
  Company Number: US-MERCK-0905USA02193

PATIENT
  Age: 47 Year
  Sex: Female
  Weight: 99 kg

DRUGS (5)
  1. FOSAMAX [Suspect]
     Indication: MULTIPLE MYELOMA
     Route: 048
     Dates: start: 19970201
  2. FOSAMAX [Suspect]
     Route: 048
     Dates: start: 19960901, end: 20060101
  3. FOSAMAX [Suspect]
     Route: 048
     Dates: end: 20020301
  4. XANAX [Concomitant]
     Indication: ANXIETY
     Route: 065
     Dates: start: 19870101
  5. ZOMETA [Concomitant]
     Route: 042
     Dates: start: 20020301

REACTIONS (41)
  - ABDOMINAL PAIN UPPER [None]
  - ADVERSE DRUG REACTION [None]
  - ALOPECIA [None]
  - ALVEOLAR OSTEITIS [None]
  - APHTHOUS STOMATITIS [None]
  - BLADDER PROLAPSE [None]
  - BONE LESION [None]
  - BONE MARROW DISORDER [None]
  - CARDIAC DISORDER [None]
  - CARPAL TUNNEL SYNDROME [None]
  - CLUSTER HEADACHE [None]
  - DEPRESSED MOOD [None]
  - DIZZINESS [None]
  - EXOSTOSIS [None]
  - FATIGUE [None]
  - FISTULA DISCHARGE [None]
  - HAEMORRHAGIC DIATHESIS [None]
  - HYPERTENSION [None]
  - HYPOAESTHESIA [None]
  - IMPAIRED HEALING [None]
  - INCISIONAL HERNIA [None]
  - INSOMNIA [None]
  - JAW DISORDER [None]
  - MENOPAUSE [None]
  - MUSCLE SPASMS [None]
  - MUSCULOSKELETAL PAIN [None]
  - ORAL HERPES [None]
  - ORAL TORUS [None]
  - OSTEONECROSIS OF JAW [None]
  - PAIN IN EXTREMITY [None]
  - PALPITATIONS [None]
  - PHLEBITIS [None]
  - RASH [None]
  - SPINAL DISORDER [None]
  - TEMPERATURE INTOLERANCE [None]
  - THYROID DISORDER [None]
  - TOOTH ABSCESS [None]
  - TOOTH DISORDER [None]
  - TOOTH FRACTURE [None]
  - UPPER RESPIRATORY TRACT INFECTION [None]
  - WEIGHT INCREASED [None]
